FAERS Safety Report 5235997-3 (Version None)
Quarter: 2007Q1

REPORT INFORMATION
  Report Type: 
  Country: None (occurrence: None)
  Receive Date: 20061208
  Receipt Date: 20060519
  Transmission Date: 20070707
  Serious: Yes (Other)
  Sender: FDA-Public Use
  Company Number: 2006UW09811

PATIENT

DRUGS (4)
  1. ATACAND [Suspect]
  2. CRESTOR [Suspect]
     Indication: LOW DENSITY LIPOPROTEIN DECREASED
     Dosage: 5 MG PO
     Route: 048
  3. TRICOR [Concomitant]
  4. QUESTRAN [Concomitant]

REACTIONS (2)
  - PROTEINURIA [None]
  - TOTAL BILE ACIDS INCREASED [None]
